FAERS Safety Report 20311043 (Version 6)
Quarter: 2022Q4

REPORT INFORMATION
  Report Type: Report from Study
  Country: JP (occurrence: JP)
  Receive Date: 20220107
  Receipt Date: 20221019
  Transmission Date: 20230113
  Serious: Yes (Death, Other)
  Sender: FDA-Public Use
  Company Number: JP-UCBSA-2022000168

PATIENT
  Age: 80 Year
  Sex: Male
  Weight: 66.3 kg

DRUGS (16)
  1. CIMZIA [Suspect]
     Active Substance: CERTOLIZUMAB PEGOL
     Indication: Psoriatic arthropathy
     Dosage: 400 MILLIGRAM, EV 4 WEEKS
     Route: 058
     Dates: start: 20210406, end: 20220121
  2. CIMZIA [Suspect]
     Active Substance: CERTOLIZUMAB PEGOL
     Indication: Off label use
  3. EPINASTINE [Concomitant]
     Active Substance: EPINASTINE
     Indication: Psoriatic arthropathy
     Route: 048
  4. DUTASTERIDE [Concomitant]
     Active Substance: DUTASTERIDE
     Indication: Benign prostatic hyperplasia
     Route: 048
  5. BIASAN [Concomitant]
     Indication: Gastritis
     Dosage: UNK, 2X/DAY (BID)
     Route: 048
  6. TAMSULOSIN HYDROCHLORIDE [Concomitant]
     Active Substance: TAMSULOSIN HYDROCHLORIDE
     Indication: Benign prostatic hyperplasia
     Route: 048
  7. DOXAZOSIN MESYLATE [Concomitant]
     Active Substance: DOXAZOSIN MESYLATE
     Indication: Chronic kidney disease
     Route: 048
  8. NORVASC [Concomitant]
     Active Substance: AMLODIPINE BESYLATE
     Indication: Chronic kidney disease
     Route: 048
  9. SODIUM BICARBONATE [Concomitant]
     Active Substance: SODIUM BICARBONATE
     Indication: Chronic kidney disease
     Route: 048
  10. SULFASALAZINE [Concomitant]
     Active Substance: SULFASALAZINE
     Indication: Psoriatic arthropathy
     Route: 048
     Dates: start: 20210316, end: 20210427
  11. BETAMETHASONE DIPROPIONATE [Concomitant]
     Active Substance: BETAMETHASONE DIPROPIONATE
     Indication: Psoriatic arthropathy
     Dosage: UNK
     Route: 065
     Dates: start: 20160113, end: 20210831
  12. PREGABALIN [Concomitant]
     Active Substance: PREGABALIN
     Indication: Product used for unknown indication
  13. MIROGABALIN [Concomitant]
     Active Substance: MIROGABALIN
     Indication: Product used for unknown indication
  14. ACETAMINOPHEN [Concomitant]
     Active Substance: ACETAMINOPHEN
     Indication: Product used for unknown indication
  15. TRAMADOL HYDROCHLORIDE ACTAVIS [Concomitant]
     Indication: Product used for unknown indication
  16. ARGATROBAN [Concomitant]
     Active Substance: ARGATROBAN
     Indication: Product used for unknown indication

REACTIONS (6)
  - Chronic kidney disease [Fatal]
  - Brain stem infarction [Fatal]
  - Trigeminal neuralgia [Unknown]
  - Otitis media [Recovered/Resolved with Sequelae]
  - Headache [Recovering/Resolving]
  - Off label use [Unknown]

NARRATIVE: CASE EVENT DATE: 20210406
